FAERS Safety Report 12477336 (Version 1)
Quarter: 2016Q2

REPORT INFORMATION
  Report Type: Spontaneous
  Country: FR (occurrence: FR)
  Receive Date: 20160617
  Receipt Date: 20160617
  Transmission Date: 20160815
  Serious: Yes (Hospitalization)
  Sender: FDA-Public Use
  Company Number: FR-ASTRAZENECA-2016SE66432

PATIENT
  Age: 56 Year
  Sex: Male

DRUGS (18)
  1. CEFAZOLIN [Suspect]
     Active Substance: CEFAZOLIN
     Indication: INFECTION
     Route: 065
     Dates: start: 20160414, end: 20160517
  2. DIFFU-K [Concomitant]
     Active Substance: POTASSIUM CHLORIDE
     Dates: start: 20160518
  3. ALBUTEROL. [Concomitant]
     Active Substance: ALBUTEROL
  4. CUBICIN [Suspect]
     Active Substance: DAPTOMYCIN
     Indication: INFECTION
     Route: 042
     Dates: start: 20160414, end: 20160517
  5. MEROPENEM. [Suspect]
     Active Substance: MEROPENEM
     Indication: INFECTION
     Route: 042
     Dates: start: 20160517, end: 20160520
  6. NEFOPAM [Concomitant]
     Active Substance: NEFOPAM
  7. TEMOCILLIN [Concomitant]
     Active Substance: TEMOCILLIN
  8. AMIKACIN [Suspect]
     Active Substance: AMIKACIN
     Indication: INFECTION
     Route: 065
     Dates: start: 20160517, end: 2016
  9. INEXIUM [Concomitant]
     Active Substance: ESOMEPRAZOLE
  10. AMLOR [Concomitant]
     Active Substance: AMLODIPINE BESYLATE
  11. XANAX [Concomitant]
     Active Substance: ALPRAZOLAM
  12. ATARAX [Concomitant]
     Active Substance: HYDROXYZINE\HYDROXYZINE HYDROCHLORIDE
  13. HEPARIN CALCIUM [Concomitant]
     Active Substance: HEPARIN CALCIUM
  14. VFEND [Concomitant]
     Active Substance: VORICONAZOLE
     Dates: start: 20160412
  15. LEVOFLOXACIN. [Suspect]
     Active Substance: LEVOFLOXACIN
     Indication: INFECTION
     Route: 065
     Dates: start: 20160518, end: 20160518
  16. STILNOX [Concomitant]
     Active Substance: ZOLPIDEM TARTRATE
  17. ACETAMINOPHEN. [Concomitant]
     Active Substance: ACETAMINOPHEN
     Dates: start: 20160513
  18. ORBENINE [Suspect]
     Active Substance: CLOXACILLIN SODIUM
     Indication: INFECTION
     Route: 065
     Dates: start: 201604, end: 20160517

REACTIONS (2)
  - Leukopenia [Recovering/Resolving]
  - Pancytopenia [Recovering/Resolving]

NARRATIVE: CASE EVENT DATE: 20160519
